FAERS Safety Report 15761766 (Version 2)
Quarter: 2019Q1

REPORT INFORMATION
  Report Type: Spontaneous
  Country: PL (occurrence: PL)
  Receive Date: 20181226
  Receipt Date: 20190109
  Transmission Date: 20190417
  Serious: Yes (Hospitalization)
  Sender: FDA-Public Use
  Company Number: PL-GLAXOSMITHKLINE-PL2018GSK231882

PATIENT
  Age: 51 Year
  Sex: Male

DRUGS (5)
  1. DEXAMETHASON [Concomitant]
     Active Substance: DEXAMETHASONE
     Indication: RASH PUSTULAR
     Dosage: 16 MG, 1D
     Route: 042
  2. PANITUMUMAB [Suspect]
     Active Substance: PANITUMUMAB
     Indication: RECTAL ADENOCARCINOMA
  3. CEFTRIAXON [Concomitant]
     Active Substance: CEFTRIAXONE
     Indication: SUPERINFECTION BACTERIAL
     Dosage: 2 G, 1D
     Route: 042
  4. ACITRETIN. [Suspect]
     Active Substance: ACITRETIN
     Indication: RASH PUSTULAR
     Dosage: 50 MG, UNK
     Route: 048
  5. PANITUMUMAB [Suspect]
     Active Substance: PANITUMUMAB
     Indication: ADENOCARCINOMA
     Dosage: UNK
     Route: 042

REACTIONS (7)
  - Paronychia [Recovering/Resolving]
  - Rash pustular [Recovering/Resolving]
  - Pruritus generalised [Recovering/Resolving]
  - Skin exfoliation [Recovering/Resolving]
  - Erythema [Recovering/Resolving]
  - Off label use [Unknown]
  - Hair disorder [Recovering/Resolving]
